FAERS Safety Report 15536771 (Version 1)
Quarter: 2018Q4

REPORT INFORMATION
  Report Type: Other
  Country: ES (occurrence: ES)
  Receive Date: 20181022
  Receipt Date: 20181022
  Transmission Date: 20190205
  Serious: Yes (Hospitalization, Other)
  Sender: FDA-Public Use
  Company Number: ES-APOTEX-2018AP022766

PATIENT
  Age: 48 Year
  Sex: Female

DRUGS (2)
  1. CIPROFLOXACIN. [Suspect]
     Active Substance: CIPROFLOXACIN
     Indication: INGROWING NAIL
     Dosage: 500 MG, Q.12H
     Route: 048
     Dates: start: 20180209, end: 201802
  2. PARACETAMOL [Suspect]
     Active Substance: ACETAMINOPHEN
     Indication: INGROWING NAIL
     Dosage: 1 G, TID
     Route: 048
     Dates: start: 20180209, end: 201802

REACTIONS (2)
  - Blister [Recovering/Resolving]
  - Stevens-Johnson syndrome [Recovering/Resolving]

NARRATIVE: CASE EVENT DATE: 20180215
